FAERS Safety Report 5274328-X (Version None)
Quarter: 2007Q1

REPORT INFORMATION
  Report Type: 
  Country: None (occurrence: None)
  Receive Date: 20070323
  Receipt Date: 20070315
  Transmission Date: 20070707
  Serious: Yes (Hospitalization, Disabling, Other)
  Sender: FDA-Public Use
  Company Number: US-PFIZER INC-2007019675

PATIENT
  Sex: Male
  Weight: 72.1 kg

DRUGS (4)
  1. CELEBREX [Suspect]
     Indication: INFLAMMATION
     Dates: start: 20001201, end: 20020301
  2. CELEBREX [Suspect]
     Indication: PAIN
  3. BEXTRA [Suspect]
     Indication: INFLAMMATION
     Dates: start: 20020401, end: 20021001
  4. BEXTRA [Suspect]
     Indication: PAIN

REACTIONS (3)
  - DEPRESSION [None]
  - PAIN [None]
  - THROMBOTIC STROKE [None]
